FAERS Safety Report 16750883 (Version 1)
Quarter: 2019Q3

REPORT INFORMATION
  Report Type: Spontaneous
  Country: FR (occurrence: FR)
  Receive Date: 20190828
  Receipt Date: 20190828
  Transmission Date: 20191005
  Serious: Yes (Life-Threatening, Hospitalization, Other)
  Sender: FDA-Public Use
  Company Number: FR-BAYER-2019-151914

PATIENT
  Age: 15 Year
  Sex: Female
  Weight: 74 kg

DRUGS (25)
  1. VORICONAZOLE. [Interacting]
     Active Substance: VORICONAZOLE
     Indication: CANDIDA INFECTION
     Dosage: 300 MG, UNK
     Route: 042
     Dates: start: 20050912, end: 20050929
  2. CASPOFUNGIN [Interacting]
     Active Substance: CASPOFUNGIN
     Indication: MUCORMYCOSIS
     Route: 042
  3. IMIDAZOLE SALICYLATE [Interacting]
     Active Substance: IMIDAZOLE SALICYLATE
     Indication: PRODUCT USED FOR UNKNOWN INDICATION
     Route: 065
  4. AMPHOTERICIN B. [Interacting]
     Active Substance: AMPHOTERICIN B
     Indication: PYREXIA
  5. OMEPRAZOLE. [Interacting]
     Active Substance: OMEPRAZOLE
     Indication: VOMITING
     Dosage: 20 MG
     Route: 048
  6. AMIKACIN. [Concomitant]
     Active Substance: AMIKACIN
  7. TARGOCID [Concomitant]
     Active Substance: TEICOPLANIN
     Indication: APLASIA
     Dosage: 900 MG, QD
     Route: 042
  8. MYCOSTATINE [Concomitant]
     Active Substance: NYSTATIN
     Route: 048
  9. PRIMPERAN [Concomitant]
     Active Substance: METOCLOPRAMIDE HYDROCHLORIDE
     Indication: NAUSEA
     Dosage: 1 DF, TID (1 AMP )
     Route: 042
  10. POLARAMINE [Concomitant]
     Active Substance: DEXCHLORPHENIRAMINE MALEATE
     Indication: PRURITUS
     Dosage: 1 DF, TID (1 AMP )
     Route: 042
  11. ONDANSETRONE RANBAXY [Interacting]
     Active Substance: ONDANSETRON HYDROCHLORIDE
  12. CEFTAZIDIME. [Concomitant]
     Active Substance: CEFTAZIDIME
     Indication: PYREXIA
     Route: 042
  13. VANCOMYCIN [Concomitant]
     Active Substance: VANCOMYCIN
  14. POSACONAZOLE [Interacting]
     Active Substance: POSACONAZOLE
     Indication: MUCORMYCOSIS
     Dosage: 200 MG, UNK
     Route: 048
     Dates: start: 20050930, end: 20050930
  15. CLOBUTINOL HYDROCHLORIDE [Concomitant]
     Active Substance: CLOBUTINOL HYDROCHLORIDE
     Route: 065
  16. TRENANTONE [Concomitant]
     Active Substance: LEUPROLIDE ACETATE
     Dosage: UNK, Q3MON
     Route: 042
  17. AMBISOME [AMPHOTERICIN B, LIPOSOME] [Concomitant]
     Indication: PYREXIA
  18. HYDROXYZINE [Concomitant]
     Active Substance: HYDROXYZINE HYDROCHLORIDE
     Indication: NERVOUSNESS
     Dosage: 30 MG, TID
     Route: 042
  19. NADOLOL. [Concomitant]
     Active Substance: NADOLOL
  20. PARACETAMOL [Concomitant]
     Active Substance: ACETAMINOPHEN
  21. AMBISOME [AMPHOTERICIN B, LIPOSOME] [Concomitant]
     Indication: ASPERGILLUS INFECTION
     Route: 042
  22. PIPERACILLIN/TAZOBACTAM [Concomitant]
     Active Substance: PIPERACILLIN SODIUM\TAZOBACTAM SODIUM
  23. TEICOPLANIN [Concomitant]
     Active Substance: TEICOPLANIN
  24. CIPROFLOXACIN. [Suspect]
     Active Substance: CIPROFLOXACIN
     Dosage: 250 MG
  25. MAGNESIUM SULPHATE [MAGNESIUM SULFATE] [Concomitant]
     Active Substance: MAGNESIUM SULFATE
     Route: 042

REACTIONS (8)
  - Drug interaction [Recovering/Resolving]
  - Thrombocytopenia [Unknown]
  - Electrocardiogram QT prolonged [Not Recovered/Not Resolved]
  - Ventricular fibrillation [Recovered/Resolved]
  - Renal failure [Unknown]
  - Torsade de pointes [Recovering/Resolving]
  - Hypomagnesaemia [Unknown]
  - Cardiac arrest [Recovered/Resolved]

NARRATIVE: CASE EVENT DATE: 20050930
